FAERS Safety Report 26150912 (Version 1)
Quarter: 2025Q4

REPORT INFORMATION
  Report Type: Report from Study
  Country: CN (occurrence: CN)
  Receive Date: 20251212
  Receipt Date: 20251212
  Transmission Date: 20260118
  Serious: Yes (Hospitalization)
  Sender: ACCORD
  Company Number: CN-Accord-517555

PATIENT
  Age: 11 Year
  Sex: Female

DRUGS (1)
  1. CLONAZEPAM [Suspect]
     Active Substance: CLONAZEPAM
     Dosage: 70 TABLETS
     Dates: start: 2024

REACTIONS (4)
  - Gait disturbance [Recovered/Resolved]
  - Intentional overdose [Unknown]
  - Respiratory acidosis [Recovered/Resolved]
  - Mental status changes [Recovered/Resolved]

NARRATIVE: CASE EVENT DATE: 20240501
